FAERS Safety Report 6781696-6 (Version None)
Quarter: 2010Q2

REPORT INFORMATION
  Report Type: 
  Country: None (occurrence: None)
  Receive Date: 20100616
  Receipt Date: 20100601
  Transmission Date: 20101027
  Serious: Yes (Hospitalization)
  Sender: FDA-Public Use
  Company Number: AUR-APL-2010-00611

PATIENT
  Age: 74 Year
  Sex: Female
  Weight: 75 kg

DRUGS (12)
  1. MIRTAZAPINE [Suspect]
     Indication: LEUKOENCEPHALOPATHY
     Dosage: 15/30 MG, BID, ORAL
     Route: 048
     Dates: start: 20091028, end: 20100105
  2. LARIAM [Suspect]
     Indication: LEUKOENCEPHALOPATHY
     Dosage: 250MG, WEEKLY, ORAL
     Route: 048
     Dates: start: 20091028, end: 20091231
  3. PANTOPRAZOLE [Suspect]
     Indication: GASTROOESOPHAGEAL REFLUX DISEASE
     Dosage: 40MG - ORAL
     Route: 048
     Dates: start: 20090601
  4. PREDNISOLONE [Suspect]
     Indication: HASHIMOTO'S ENCEPHALOPATHY
     Dosage: 5MG - DAILY - ORAL
     Route: 048
     Dates: start: 20091001
  5. TOREM [Suspect]
     Indication: RENAL FAILURE CHRONIC
     Dosage: 10 MG - ORAL
     Route: 048
     Dates: start: 20090601
  6. ISCOVER [Suspect]
     Indication: CORONARY ARTERY DISEASE
     Dosage: 75MG - ORAL
     Route: 048
     Dates: start: 20090901
  7. ACETYLSALICYLIC ACID [Concomitant]
  8. DIGITOXIN [Concomitant]
  9. CALCIUM CARBONATE [Concomitant]
  10. SPIRONOLACTONE [Concomitant]
  11. IRBESARTAN [Concomitant]
  12. ACTRAPID (INSULIN HUMAN) [Concomitant]

REACTIONS (4)
  - ANAEMIA [None]
  - DRUG INTERACTION [None]
  - PANCYTOPENIA [None]
  - PYREXIA [None]
